FAERS Safety Report 4708464-0 (Version None)
Quarter: 2005Q3

REPORT INFORMATION
  Report Type: 
  Country: None (occurrence: None)
  Receive Date: 20050706
  Receipt Date: 20050621
  Transmission Date: 20060218
  Serious: Yes (Other)
  Sender: FDA-Public Use
  Company Number: 200512365BCC

PATIENT
  Age: 36 Year
  Sex: Male
  Weight: 140 kg

DRUGS (5)
  1. ALEVE [Suspect]
     Indication: BACK PAIN
     Dosage: 220-440, IRR, ORAL; 440 MG, TOTAL DAILY, ORAL
     Route: 048
     Dates: start: 20050401
  2. ALEVE [Suspect]
     Indication: HEADACHE
     Dosage: 220-440, IRR, ORAL; 440 MG, TOTAL DAILY, ORAL
     Route: 048
     Dates: start: 20050401
  3. ALEVE [Suspect]
     Indication: BACK PAIN
     Dosage: 220-440, IRR, ORAL; 440 MG, TOTAL DAILY, ORAL
     Route: 048
     Dates: start: 20050617
  4. ALEVE [Suspect]
     Indication: HEADACHE
     Dosage: 220-440, IRR, ORAL; 440 MG, TOTAL DAILY, ORAL
     Route: 048
     Dates: start: 20050617
  5. MOBIC [Concomitant]

REACTIONS (17)
  - BLISTER [None]
  - DIZZINESS [None]
  - DYSPNOEA [None]
  - DYSURIA [None]
  - ECZEMA INFECTED [None]
  - EYELID OEDEMA [None]
  - HEADACHE [None]
  - HEART RATE INCREASED [None]
  - HYPERACUSIS [None]
  - INFLUENZA [None]
  - NEOPLASM MALIGNANT [None]
  - PHOTOPHOBIA [None]
  - RENAL PAIN [None]
  - RHINORRHOEA [None]
  - SHOCK [None]
  - SKIN DISCOLOURATION [None]
  - TREMOR [None]
